FAERS Safety Report 17273353 (Version 1)
Quarter: 2020Q1

REPORT INFORMATION
  Report Type: Spontaneous
  Country: DE (occurrence: DE)
  Receive Date: 20200115
  Receipt Date: 20200115
  Transmission Date: 20200409
  Serious: Yes (Other)
  Sender: FDA-Public Use
  Company Number: DE-JNJFOC-20200120899

PATIENT
  Age: 90 Year
  Sex: Male

DRUGS (2)
  1. RIVAROXABAN [Suspect]
     Active Substance: RIVAROXABAN
     Indication: EMBOLISM VENOUS
     Dosage: UNK
     Route: 048
     Dates: start: 201912
  2. MARCUMAR [Concomitant]
     Active Substance: PHENPROCOUMON
     Dosage: UNK
     Dates: end: 201912

REACTIONS (2)
  - Blindness [Not Recovered/Not Resolved]
  - Eye haemorrhage [Unknown]

NARRATIVE: CASE EVENT DATE: 201912
